FAERS Safety Report 4877162-5 (Version None)
Quarter: 2005Q4

REPORT INFORMATION
  Report Type: 
  Country: None (occurrence: None)
  Receive Date: 20051206
  Receipt Date: 20050801
  Transmission Date: 20060501
  Serious: No
  Sender: FDA-Public Use
  Company Number: USA0508104582

PATIENT
  Age: 80 Year
  Sex: Male

DRUGS (1)
  1. CYMBALTA [Suspect]
     Indication: MAJOR DEPRESSION
     Dosage: 60 MG
     Dates: start: 20050701

REACTIONS (2)
  - HEADACHE [None]
  - THINKING ABNORMAL [None]
